FAERS Safety Report 9463666 (Version 1)
Quarter: 2013Q3

REPORT INFORMATION
  Report Type: Spontaneous
  Country: GB (occurrence: GB)
  Receive Date: 20130819
  Receipt Date: 20130819
  Transmission Date: 20140515
  Serious: Yes (Life-Threatening, Hospitalization, Other)
  Sender: FDA-Public Use
  Company Number: PHFR2013GB004759

PATIENT
  Age: 75 Year
  Sex: Male
  Weight: 96 kg

DRUGS (1)
  1. METHYSERGIDE MALEATE [Suspect]
     Indication: MIGRAINE
     Route: 048

REACTIONS (6)
  - Atelectasis [Not Recovered/Not Resolved]
  - Dyspnoea [Not Recovered/Not Resolved]
  - Pericarditis constrictive [Not Recovered/Not Resolved]
  - Pericardial fibrosis [Not Recovered/Not Resolved]
  - Pleural effusion [Not Recovered/Not Resolved]
  - Pleural fibrosis [Not Recovered/Not Resolved]
